FAERS Safety Report 7060657-6 (Version None)
Quarter: 2010Q4

REPORT INFORMATION
  Report Type: 
  Country: None (occurrence: None)
  Receive Date: 20101025
  Receipt Date: 20101014
  Transmission Date: 20110411
  Serious: Yes (Life-Threatening)
  Sender: FDA-Public Use
  Company Number: US-ROCHE-729460

PATIENT
  Sex: Female
  Weight: 60.3 kg

DRUGS (5)
  1. BEVACIZUMAB [Suspect]
     Indication: BREAST CANCER
     Dosage: TOTAL DOSE: 932 MG, PATIENT WITHDRAWN FROM STUDY
     Route: 042
     Dates: start: 20100504
  2. CAPECITABINE [Suspect]
     Indication: BREAST CANCER
     Route: 065
     Dates: start: 20100504
  3. DOCETAXEL [Suspect]
     Indication: BREAST CANCER
     Route: 065
  4. ADRIAMYCIN PFS [Concomitant]
     Dosage: START DATE: 26 JULY, DOSE: 40 - 103 MG/M2
  5. CYTOXAN [Concomitant]

REACTIONS (1)
  - PERICARDIAL EFFUSION [None]
